FAERS Safety Report 14144959 (Version 2)
Quarter: 2018Q1

REPORT INFORMATION
  Report Type: Spontaneous
  Country: US (occurrence: US)
  Receive Date: 20171031
  Receipt Date: 20180119
  Transmission Date: 20180508
  Serious: Yes (Congenital Anomaly)
  Sender: FDA-Public Use
  Company Number: US-AMAG PHARMACEUTICALS, INC.-AMAG201703343

PATIENT

DRUGS (1)
  1. MAKENA [Suspect]
     Active Substance: HYDROXYPROGESTERONE CAPROATE
     Indication: FOETAL EXPOSURE DURING PREGNANCY
     Dosage: 250 MG/ML, WEEKLY
     Route: 064
     Dates: start: 20140926

REACTIONS (4)
  - Laryngomalacia [Not Recovered/Not Resolved]
  - Neonatal gastrointestinal disorder [Unknown]
  - Constipation [Unknown]
  - Infantile vomiting [Not Recovered/Not Resolved]

NARRATIVE: CASE EVENT DATE: 20150119
